FAERS Safety Report 7028854-3 (Version None)
Quarter: 2010Q4

REPORT INFORMATION
  Report Type: 
  Country: None (occurrence: None)
  Receive Date: 20101004
  Receipt Date: 20101004
  Transmission Date: 20110411
  Serious: Yes (Life-Threatening, Disabling)
  Sender: FDA-Public Use
  Company Number: None

PATIENT
  Age: 50 Year
  Sex: Male
  Weight: 90.7194 kg

DRUGS (1)
  1. OXYCONTIN [Suspect]
     Indication: MULTIPLE INJURIES
     Dosage: 1 TAB 4 TO 5 TIMES DAILY
     Dates: start: 20100920, end: 20101001

REACTIONS (14)
  - ACTIVITIES OF DAILY LIVING IMPAIRED [None]
  - APPARENT DEATH [None]
  - ASTHENIA [None]
  - DECREASED APPETITE [None]
  - FEAR [None]
  - FLATULENCE [None]
  - MALAISE [None]
  - MEMORY IMPAIRMENT [None]
  - PRODUCT QUALITY ISSUE [None]
  - PRODUCT SUBSTITUTION ISSUE [None]
  - RASH [None]
  - SPEECH DISORDER [None]
  - UNEVALUABLE EVENT [None]
  - WITHDRAWAL SYNDROME [None]
